FAERS Safety Report 9267501 (Version 3)
Quarter: 2014Q2

REPORT INFORMATION
  Report Type: Spontaneous
  Country: AT (occurrence: AT)
  Receive Date: 20130502
  Receipt Date: 20140620
  Transmission Date: 20141212
  Serious: Yes (Hospitalization, Disabling, Other)
  Sender: FDA-Public Use
  Company Number: AT-GLAXOSMITHKLINE-B0888838A

PATIENT
  Sex: Female
  Weight: 68 kg

DRUGS (1)
  1. BENLYSTA [Suspect]
     Indication: SYSTEMIC LUPUS ERYTHEMATOSUS
     Route: 065
     Dates: start: 200803, end: 200912

REACTIONS (7)
  - Epigastric discomfort [Not Recovered/Not Resolved]
  - Alopecia [Not Recovered/Not Resolved]
  - Respiratory tract irritation [Unknown]
  - Liver disorder [Unknown]
  - Renal disorder [Unknown]
  - Cardiac discomfort [Unknown]
  - Myocardial infarction [Unknown]
